FAERS Safety Report 17505713 (Version 1)
Quarter: 2020Q1

REPORT INFORMATION
  Report Type: Spontaneous
  Country: US (occurrence: US)
  Receive Date: 20200225
  Receipt Date: 20200225
  Transmission Date: 20200409
  Serious: No
  Sender: FDA-Public Use
  Company Number: None

PATIENT
  Age: 75 Year
  Sex: Male
  Weight: 125.19 kg

DRUGS (1)
  1. METOPRO;O; (METOPROLOL (SUCCINATE 25MG C TAB SA [Suspect]
     Active Substance: METOPROLOL SUCCINATE
     Indication: CARDIAC FAILURE
     Dates: start: 20180613, end: 20190623

REACTIONS (3)
  - Diarrhoea [None]
  - Syncope [None]
  - Bradycardia [None]

NARRATIVE: CASE EVENT DATE: 20190621
